FAERS Safety Report 5750689-X (Version None)
Quarter: 2008Q2

REPORT INFORMATION
  Report Type: 
  Country: None (occurrence: None)
  Receive Date: 20080528
  Receipt Date: 20080516
  Transmission Date: 20081010
  Serious: Yes (Other)
  Sender: FDA-Public Use
  Company Number: IE-ROCHE-550556

PATIENT
  Sex: Female

DRUGS (6)
  1. BONIVA [Suspect]
     Indication: OSTEOPOROSIS
     Route: 048
     Dates: start: 20060510, end: 20080213
  2. ZOCOR [Suspect]
     Route: 048
     Dates: start: 20070515, end: 20070731
  3. EZETROL [Concomitant]
     Dates: start: 20071010, end: 20071130
  4. LANSOPRAZOLE [Concomitant]
     Route: 048
  5. LIPITOR [Concomitant]
     Route: 048
  6. CALCICHEW [Concomitant]
     Dosage: DRUG NAME: CALCICHEW D3
     Route: 048
     Dates: start: 20060510

REACTIONS (6)
  - ABDOMINAL PAIN UPPER [None]
  - BLOOD CREATINE PHOSPHOKINASE ABNORMAL [None]
  - BLOOD LACTATE DEHYDROGENASE ABNORMAL [None]
  - BONE MARROW FAILURE [None]
  - GAMMA-GLUTAMYLTRANSFERASE ABNORMAL [None]
  - WHITE BLOOD CELL COUNT DECREASED [None]
